FAERS Safety Report 5298769-X (Version None)
Quarter: 2007Q2

REPORT INFORMATION
  Report Type: 
  Country: None (occurrence: None)
  Receive Date: 20070417
  Receipt Date: 20070409
  Transmission Date: 20071010
  Serious: Yes (Death)
  Sender: FDA-Public Use
  Company Number: BR-JNJFOC-20070402724

PATIENT
  Age: 64 Year
  Sex: Male

DRUGS (1)
  1. TRAMADOL HCL [Suspect]
     Indication: BACK PAIN
     Route: 048

REACTIONS (2)
  - DEATH [None]
  - OVERDOSE [None]
